FAERS Safety Report 10396278 (Version 1)
Quarter: 2014Q1

REPORT INFORMATION
  Report Type: Spontaneous
  Country: US (occurrence: None)
  Receive Date: 20130130
  Receipt Date: 20130130
  Transmission Date: 20141002
  Serious: Yes (Hospitalization, Other)
  Sender: FDA-Public Use
  Company Number: US201001007938

PATIENT
  Age: 54 Year
  Sex: Female
  Weight: 118.8 kg

DRUGS (6)
  1. BYETTA (EXENATIDE) PEN, DISPOSABLE [Suspect]
     Route: 058
  2. AMITRIPTYLINE (AMITRIPTYLINE) [Concomitant]
  3. LOVASTATIN (LOVASTATIN) [Concomitant]
  4. GLYBURIDE/METFORMIN (GLIBENCLAMIDE, METFORMIN HYDROCHLORIDE) [Concomitant]
  5. NAPROXYN (NAPROXEN) [Concomitant]
  6. LASIX (FUROSEMIDE) [Concomitant]

REACTIONS (1)
  - Pancreatitis acute [None]
